FAERS Safety Report 4857458-3 (Version None)
Quarter: 2005Q4

REPORT INFORMATION
  Report Type: 
  Country: None (occurrence: None)
  Receive Date: 20051219
  Receipt Date: 20050308
  Transmission Date: 20060501
  Serious: No
  Sender: FDA-Public Use
  Company Number: US-GLAXOSMITHKLINE-A0548753A

PATIENT
  Age: 25 Year
  Sex: Female

DRUGS (4)
  1. NICODERM CQ [Suspect]
     Dates: start: 20050303, end: 20050307
  2. NICODERM CQ [Suspect]
  3. NICODERM CQ [Suspect]
  4. NICODERM CQ [Suspect]

REACTIONS (1)
  - DIZZINESS [None]
